FAERS Safety Report 7980260 (Version 2)
Quarter: 2013Q2

REPORT INFORMATION
  Report Type: Spontaneous
  Country: US (occurrence: None)
  Receive Date: 20110418
  Receipt Date: 20120501
  Transmission Date: 20140414
  Serious: Yes (Life-Threatening, Other)
  Sender: FDA-Public Use
  Company Number: 2011027799

PATIENT
  Age: 33 Year
  Sex: Female
  Weight: 100 kg

DRUGS (3)
  1. BERINERT [Suspect]
     Indication: HEREDITARY ANGIOEDEMA
     Dosage: SEE IMAGE
     Route: 042
     Dates: start: 201103
  2. LASIX [Concomitant]
  3. PROPOFOL [Concomitant]

REACTIONS (4)
  - LARYNGEAL OEDEMA [None]
  - SWOLLEN TONGUE [None]
  - STRIDOR [None]
  - DRUG INEFFECTIVE [None]
